FAERS Safety Report 17119697 (Version 1)
Quarter: 2019Q4

REPORT INFORMATION
  Report Type: Spontaneous
  Country: NL (occurrence: NL)
  Receive Date: 20191206
  Receipt Date: 20191206
  Transmission Date: 20200122
  Serious: Yes (Hospitalization)
  Sender: FDA-Public Use
  Company Number: NL-TEVA-2019-NL-1147112

PATIENT
  Sex: Male
  Weight: 80 kg

DRUGS (5)
  1. MESALAZINE MAAGSAPRESISTENTE TABLET, 250 MG (MILLIGRAM) [Suspect]
     Active Substance: MESALAMINE
     Indication: COLITIS ULCERATIVE
     Dosage: 2 DD1 , 250 MG 12 HOURS
     Dates: start: 20181001
  2. URSOCHOL [Concomitant]
     Active Substance: URSODIOL
  3. CALCI CHEW [Concomitant]
  4. PREDNISON [Concomitant]
     Active Substance: PREDNISONE
  5. AZATHIOPURINE [Concomitant]
     Active Substance: AZATHIOPRINE

REACTIONS (2)
  - Calculus urinary [Recovering/Resolving]
  - Nephrolithiasis [Recovering/Resolving]
